FAERS Safety Report 26141946 (Version 1)
Quarter: 2025Q4

REPORT INFORMATION
  Report Type: Spontaneous
  Country: US (occurrence: US)
  Receive Date: 20251210
  Receipt Date: 20251210
  Transmission Date: 20260117
  Serious: Yes (Other)
  Sender: NOVO NORDISK
  Company Number: US-NOVOPROD-1579550

PATIENT
  Sex: Male

DRUGS (2)
  1. NOVOLIN R [Suspect]
     Active Substance: INSULIN HUMAN
     Indication: Diabetes mellitus
     Dosage: 3-4 UNITS AS NEEDED IF SUGAR IS 200 OR HIGHER
     Route: 058
     Dates: start: 2023
  2. NOVOLIN 70/30 [Suspect]
     Active Substance: INSULIN HUMAN
     Indication: Diabetes mellitus
     Dosage: 8 -10 UNITS 3 TIMES PER DAY
     Route: 058
     Dates: start: 2023

REACTIONS (1)
  - Pancreatolithiasis [Unknown]
